FAERS Safety Report 21986300 (Version 4)
Quarter: 2023Q2

REPORT INFORMATION
  Report Type: Spontaneous
  Country: DE (occurrence: DE)
  Receive Date: 20230213
  Receipt Date: 20230503
  Transmission Date: 20230721
  Serious: Yes (Other)
  Sender: FDA-Public Use
  Company Number: DE-002147023-NVSC2022DE302886

PATIENT
  Age: 8 Year
  Sex: Female
  Weight: 28 kg

DRUGS (4)
  1. ILARIS [Suspect]
     Active Substance: CANAKINUMAB
     Indication: Cryopyrin associated periodic syndrome
     Dosage: 60 MG, EVERY 8 WEEKS
     Route: 058
     Dates: start: 20220405
  2. ILARIS [Suspect]
     Active Substance: CANAKINUMAB
     Indication: Familial mediterranean fever
     Dosage: 60 MG
     Route: 058
     Dates: start: 20220601
  3. ILARIS [Suspect]
     Active Substance: CANAKINUMAB
     Dosage: 120 MG
     Route: 058
  4. VITAMIN D [Concomitant]
     Active Substance: VITAMIN D NOS
     Indication: Familial mediterranean fever
     Dosage: 2000 IU
     Route: 048
     Dates: start: 20220801

REACTIONS (8)
  - Epiglottitis [Recovered/Resolved]
  - Pyrexia [Recovered/Resolved]
  - Laryngeal oedema [Unknown]
  - Blood immunoglobulin G decreased [Unknown]
  - Neutrophil count abnormal [Unknown]
  - Serum amyloid A protein increased [Recovered/Resolved]
  - C-reactive protein increased [Recovered/Resolved]
  - Tracheitis [Recovered/Resolved]

NARRATIVE: CASE EVENT DATE: 20220725
